FAERS Safety Report 11214631 (Version 1)
Quarter: 2015Q2

REPORT INFORMATION
  Report Type: Spontaneous
  Country: US (occurrence: None)
  Receive Date: 20150622
  Receipt Date: 20150622
  Transmission Date: 20150821
  Serious: Yes (Other)
  Sender: FDA-Public Use
  Company Number: DEP_03031_2015

PATIENT
  Age: 60 Year
  Sex: Female
  Weight: 90.72 kg

DRUGS (12)
  1. COLCHICINE. [Concomitant]
     Active Substance: COLCHICINE
  2. PREVACID [Concomitant]
     Active Substance: LANSOPRAZOLE
  3. SYNTHROID [Concomitant]
     Active Substance: LEVOTHYROXINE SODIUM
  4. DIFLUCAN [Concomitant]
     Active Substance: FLUCONAZOLE
  5. PREDNISONE. [Concomitant]
     Active Substance: PREDNISONE
  6. GRALISE [Suspect]
     Active Substance: GABAPENTIN
     Indication: NEUROPATHY PERIPHERAL
     Dosage: (TITRATED UP TO 1800 MG ONCE DAILY ORAL)
     Route: 048
     Dates: start: 20150516
  7. MYRBETRIQ [Concomitant]
     Active Substance: MIRABEGRON
  8. PLAQUENIL [Concomitant]
     Active Substance: HYDROXYCHLOROQUINE SULFATE
  9. ESTROPIPATE. [Concomitant]
     Active Substance: ESTROPIPATE
  10. NEURONTIN [Concomitant]
     Active Substance: GABAPENTIN
  11. NYSTATIN. [Concomitant]
     Active Substance: NYSTATIN
  12. GRALISE [Suspect]
     Active Substance: GABAPENTIN
     Indication: OFF LABEL USE
     Dosage: (TITRATED UP TO 1800 MG ONCE DAILY ORAL)
     Route: 048
     Dates: start: 20150516

REACTIONS (2)
  - Loss of consciousness [None]
  - Drug ineffective for unapproved indication [None]

NARRATIVE: CASE EVENT DATE: 20150516
